FAERS Safety Report 18815330 (Version 1)
Quarter: 2021Q1

REPORT INFORMATION
  Report Type: Spontaneous
  Country: US (occurrence: US)
  Receive Date: 20210130
  Receipt Date: 20210130
  Transmission Date: 20210419
  Serious: Yes (Other)
  Sender: FDA-Public Use
  Company Number: None

PATIENT
  Age: 63 Year
  Sex: Female
  Weight: 96.3 kg

DRUGS (8)
  1. ENOXAPARIN [Suspect]
     Active Substance: ENOXAPARIN
     Indication: DEEP VEIN THROMBOSIS
     Route: 058
     Dates: start: 20210113, end: 20210124
  2. ASPIRIN. [Concomitant]
     Active Substance: ASPIRIN
     Dates: start: 20210102, end: 20210124
  3. AMLODIPINE [Concomitant]
     Active Substance: AMLODIPINE BESYLATE
     Dates: start: 20210102, end: 20210125
  4. PANTOPRAZOLE [Concomitant]
     Active Substance: PANTOPRAZOLE
     Dates: start: 20210102, end: 20210130
  5. ACETAMINOPHEN. [Concomitant]
     Active Substance: ACETAMINOPHEN
     Dates: start: 20210101, end: 20210125
  6. BUDESONIDE. [Concomitant]
     Active Substance: BUDESONIDE
     Dates: start: 20210102, end: 20210125
  7. DEXAMETHASONE. [Concomitant]
     Active Substance: DEXAMETHASONE
     Dates: start: 20210102, end: 20210125
  8. ALBUTEROL. [Concomitant]
     Active Substance: ALBUTEROL
     Dates: start: 20210101

REACTIONS (6)
  - Contusion [None]
  - Extravasation [None]
  - Transfusion [None]
  - Abdominal wall haematoma [None]
  - Haemoglobin decreased [None]
  - Haematoma [None]

NARRATIVE: CASE EVENT DATE: 20210125
